FAERS Safety Report 16978825 (Version 1)
Quarter: 2019Q4

REPORT INFORMATION
  Report Type: Spontaneous
  Country: CA (occurrence: CA)
  Receive Date: 20191031
  Receipt Date: 20191031
  Transmission Date: 20200122
  Serious: Yes (Death, Life-Threatening)
  Sender: FDA-Public Use
  Company Number: CA-PFIZER INC-2019467235

PATIENT
  Age: 84 Year
  Sex: Female
  Weight: 50 kg

DRUGS (2)
  1. ATIVAN [Suspect]
     Active Substance: LORAZEPAM
     Dosage: 0.5 MG, AS REQUIRED
     Route: 048
  2. ATIVAN [Suspect]
     Active Substance: LORAZEPAM
     Indication: ANXIETY
     Dosage: 1 MG, UNK[TOTAL]
     Route: 048

REACTIONS (13)
  - Hip fracture [Fatal]
  - Pain [Fatal]
  - Somnolence [Fatal]
  - Mental impairment [Fatal]
  - Cognitive disorder [Fatal]
  - Incontinence [Fatal]
  - Feeding disorder [Fatal]
  - Asthenopia [Fatal]
  - Dysstasia [Fatal]
  - Fall [Fatal]
  - Incoherent [Fatal]
  - Pelvic fracture [Fatal]
  - Stupor [Fatal]
